FAERS Safety Report 16969909 (Version 1)
Quarter: 2019Q4

REPORT INFORMATION
  Report Type: Report from Study
  Country: CA (occurrence: CA)
  Receive Date: 20191029
  Receipt Date: 20191029
  Transmission Date: 20200122
  Serious: Yes (Other)
  Sender: FDA-Public Use
  Company Number: CA-TAKEDA-2019TUS060420

PATIENT
  Age: 80 Year
  Sex: Male

DRUGS (10)
  1. FLOMAX [Concomitant]
     Active Substance: TAMSULOSIN HYDROCHLORIDE
     Dosage: .4 MILLIGRAM, QD
  2. SANDOSTATIN [Concomitant]
     Active Substance: OCTREOTIDE ACETATE
     Dosage: UNK UNK, MONTHLY
  3. LASIX [Concomitant]
     Active Substance: FUROSEMIDE
     Dosage: 20 MILLIGRAM, QD
  4. ASPIRIN                            /00002701/ [Concomitant]
     Active Substance: ASPIRIN
     Dosage: 81 MILLIGRAM, QD
  5. VEDOLIZUMAB [Suspect]
     Active Substance: VEDOLIZUMAB
     Indication: CROHN^S DISEASE
     Dosage: 300 MILLIGRAM
     Route: 042
     Dates: start: 20190719
  6. BISOPROLOL [Concomitant]
     Active Substance: BISOPROLOL
     Dosage: 5 MILLIGRAM, QD
  7. ATORVASTATIN [Concomitant]
     Active Substance: ATORVASTATIN
     Dosage: UNK
  8. LIPITOR [Concomitant]
     Active Substance: ATORVASTATIN CALCIUM
     Dosage: 20 MILLIGRAM, QD
  9. AVODART [Concomitant]
     Active Substance: DUTASTERIDE
     Dosage: 0.5 MILLIGRAM, QD
  10. MAVIK [Concomitant]
     Active Substance: TRANDOLAPRIL
     Dosage: UNK

REACTIONS (1)
  - Neuroendocrine tumour of the lung [Unknown]

NARRATIVE: CASE EVENT DATE: 2019
